FAERS Safety Report 10004480 (Version 2)
Quarter: 2014Q1

REPORT INFORMATION
  Report Type: Spontaneous
  Country: US (occurrence: US)
  Receive Date: 20140312
  Receipt Date: 20140312
  Transmission Date: 20141002
  Serious: No
  Sender: FDA-Public Use
  Company Number: US-INCYTE CORPORATION-2013IN001853

PATIENT
  Sex: Male

DRUGS (8)
  1. JAKAFI [Suspect]
     Indication: LYMPHOCYTIC LEUKAEMIA
     Dosage: 20 MG, BID
     Route: 048
     Dates: start: 201305, end: 2013
  2. JAKAFI [Suspect]
     Indication: ILL-DEFINED DISORDER
     Dosage: 10 MG, QD
     Route: 048
     Dates: start: 2013, end: 2013
  3. JAKAFI [Suspect]
     Dosage: 20 MG AM, 10 MG PM
     Route: 048
     Dates: start: 2013
  4. METOPROLOL [Concomitant]
     Dosage: 50 MG, BID
     Route: 048
  5. FAMCICLOVIR [Concomitant]
     Dosage: UNK
  6. ASPIRIN [Concomitant]
     Dosage: 81 MG, QD
     Route: 048
  7. CEFPROZIL [Concomitant]
     Dosage: 250 MG, BID
     Route: 048
  8. ZYRTEC [Concomitant]
     Dosage: 10 MG, QD
     Route: 048

REACTIONS (3)
  - Diarrhoea [Unknown]
  - Fatigue [Unknown]
  - Furuncle [Unknown]
